FAERS Safety Report 4638520-7 (Version None)
Quarter: 2005Q2

REPORT INFORMATION
  Report Type: 
  Country: None (occurrence: None)
  Receive Date: 20050418
  Receipt Date: 20050418
  Transmission Date: 20051028
  Serious: No
  Sender: FDA-Public Use
  Company Number: None

PATIENT
  Sex: Male
  Weight: 118 kg

DRUGS (4)
  1. FLUOROURACIL [Suspect]
     Dates: start: 20041214
  2. LEUCOVORIN CALCIUM [Suspect]
  3. OXALIPLATIN (MFOLFOX6) [Suspect]
     Dosage: EVERY TWO WEEKS
  4. BEVACIZUMAB [Suspect]
     Dosage: SEE IMAGE

REACTIONS (5)
  - ASTHENIA [None]
  - CONVULSION [None]
  - DEPRESSED LEVEL OF CONSCIOUSNESS [None]
  - DIZZINESS [None]
  - TONIC CLONIC MOVEMENTS [None]
